FAERS Safety Report 7718923-4 (Version None)
Quarter: 2011Q3

REPORT INFORMATION
  Report Type: 
  Country: None (occurrence: None)
  Receive Date: 20110830
  Receipt Date: 20110819
  Transmission Date: 20111222
  Serious: Yes (Hospitalization)
  Sender: FDA-Public Use
  Company Number: US-GLAXOSMITHKLINE-A0747388A

PATIENT
  Age: 74 Year
  Sex: Male
  Weight: 86.4 kg

DRUGS (8)
  1. CRESTOR [Concomitant]
  2. ZESTORETIC [Concomitant]
  3. NORVASC [Concomitant]
  4. TOPROL-XL [Concomitant]
  5. ASPIRIN [Concomitant]
  6. TRICOR [Concomitant]
  7. AVANDIA [Suspect]
     Indication: TYPE 2 DIABETES MELLITUS
     Dosage: 8MG PER DAY
     Route: 065
     Dates: start: 20000101, end: 20070101
  8. MELLARIL [Concomitant]

REACTIONS (7)
  - MYOCARDIAL ISCHAEMIA [None]
  - AMNESIA [None]
  - ANXIETY [None]
  - MYOCARDIAL INFARCTION [None]
  - CARDIAC DISORDER [None]
  - CHEST PAIN [None]
  - CEREBROVASCULAR ACCIDENT [None]
